FAERS Safety Report 4959449-0 (Version None)
Quarter: 2006Q1

REPORT INFORMATION
  Report Type: 
  Country: None (occurrence: None)
  Receive Date: 20060331
  Receipt Date: 20050829
  Transmission Date: 20060701
  Serious: Yes (Hospitalization, Disabling)
  Sender: FDA-Public Use
  Company Number: US-MERCK-0508USA04738

PATIENT
  Age: 58 Year
  Sex: Male
  Weight: 114 kg

DRUGS (2)
  1. VIOXX [Suspect]
     Indication: ARTHRITIS
     Route: 048
     Dates: start: 20010101, end: 20030301
  2. VIOXX [Suspect]
     Route: 048
     Dates: start: 20010101, end: 20030301

REACTIONS (9)
  - CHEST PAIN [None]
  - DEAFNESS [None]
  - DEPRESSION [None]
  - DIZZINESS [None]
  - FIBULA FRACTURE [None]
  - ISCHAEMIC STROKE [None]
  - MYOCARDIAL INFARCTION [None]
  - NERVE INJURY [None]
  - TIBIA FRACTURE [None]
